FAERS Safety Report 10452130 (Version 1)
Quarter: 2014Q3

REPORT INFORMATION
  Report Type: Spontaneous
  Country: AL (occurrence: None)
  Receive Date: 20140911
  Receipt Date: 20140911
  Transmission Date: 20150326
  Serious: Yes (Death, Hospitalization, Other)
  Sender: FDA-Public Use
  Company Number: AL-ZYDUS-004944

PATIENT
  Age: 42 Year
  Sex: Female

DRUGS (1)
  1. METFORMIN [Suspect]
     Active Substance: METFORMIN HYDROCHLORIDE

REACTIONS (8)
  - Lactic acidosis [None]
  - Cardiac failure [None]
  - Circulatory collapse [None]
  - Hypotension [None]
  - Blindness [None]
  - Multi-organ failure [None]
  - Sopor [None]
  - Intentional overdose [None]
